FAERS Safety Report 5628055-7 (Version None)
Quarter: 2008Q1

REPORT INFORMATION
  Report Type: 
  Country: None (occurrence: None)
  Receive Date: 20080215
  Receipt Date: 20080208
  Transmission Date: 20080703
  Serious: Yes (Hospitalization)
  Sender: FDA-Public Use
  Company Number: DE-ASTRAZENECA-2008PK00294

PATIENT
  Age: 56 Year
  Sex: Male

DRUGS (2)
  1. SEROQUEL [Suspect]
     Route: 048
     Dates: start: 20070730, end: 20070731
  2. DIAZEPAM [Concomitant]
     Dosage: BETWEEN 30 AND 0 MG/DAY
     Route: 048
     Dates: start: 20070703, end: 20070809

REACTIONS (1)
  - CEREBROVASCULAR DISORDER [None]
